FAERS Safety Report 9675525 (Version 2)
Quarter: 2013Q4

REPORT INFORMATION
  Report Type: Report from Study
  Country: BR (occurrence: BR)
  Receive Date: 20131107
  Receipt Date: 20131126
  Transmission Date: 20140711
  Serious: Yes (Hospitalization)
  Sender: FDA-Public Use
  Company Number: BR-ROCHE-1299918

PATIENT
  Sex: Female
  Weight: 57 kg

DRUGS (1)
  1. MABTHERA [Suspect]
     Indication: RHEUMATOID ARTHRITIS
     Dosage: MOST RECENT INFUSION ON 26/NOV/2012
     Route: 065
     Dates: start: 20080801

REACTIONS (1)
  - Osteoarthritis [Recovered/Resolved]
